FAERS Safety Report 5785942-7 (Version None)
Quarter: 2008Q2

REPORT INFORMATION
  Report Type: 
  Country: None (occurrence: None)
  Receive Date: 20080620
  Receipt Date: 20080620
  Transmission Date: 20081010
  Serious: Yes (Death)
  Sender: FDA-Public Use
  Company Number: None

PATIENT
  Sex: Female

DRUGS (10)
  1. REVLIMID [Suspect]
     Indication: MULTIPLE MYELOMA
     Dosage: 10MG DAILY 21D/28D PO
     Route: 048
  2. DEXAMETHASONE TAB [Concomitant]
  3. METOPROLOL SUCCINATE [Concomitant]
  4. SIMVASTATIN [Concomitant]
  5. OMEPRAZOLE [Concomitant]
  6. PROCRIT [Concomitant]
  7. VICODIN [Concomitant]
  8. FOLIC ACID [Concomitant]
  9. FERROUS SULFATE TAB [Concomitant]
  10. CALCITRIOL [Concomitant]

REACTIONS (4)
  - ANAEMIA [None]
  - CARDIAC ARREST [None]
  - PNEUMONIA [None]
  - SEPSIS [None]
